FAERS Safety Report 11901221 (Version 1)
Quarter: 2016Q1

REPORT INFORMATION
  Report Type: Report from Study
  Country: US (occurrence: US)
  Receive Date: 20160108
  Receipt Date: 20160108
  Transmission Date: 20160526
  Serious: No
  Sender: FDA-Public Use
  Company Number: US-ABBVIE-15P-163-1500609-00

PATIENT
  Sex: Female

DRUGS (2)
  1. RIBASPHERE [Concomitant]
     Active Substance: RIBAVIRIN
     Indication: HEPATITIS C
  2. VIEKIRA PAK [Suspect]
     Active Substance: DASABUVIR\OMBITASVIR\PARITAPREVIR\RITONAVIR
     Indication: HEPATITIS C
     Dosage: IN THE AM AND THE PM
     Route: 048
     Dates: start: 20151010

REACTIONS (8)
  - Increased tendency to bruise [Unknown]
  - Mood altered [Unknown]
  - Sleep disorder [Unknown]
  - Insomnia [Unknown]
  - Haemorrhagic diathesis [Unknown]
  - Pruritus [Unknown]
  - Vision blurred [Unknown]
  - Alopecia [Unknown]
